FAERS Safety Report 6391491-8 (Version None)
Quarter: 2009Q4

REPORT INFORMATION
  Report Type: 
  Country: None (occurrence: None)
  Receive Date: 20091007
  Receipt Date: 20090929
  Transmission Date: 20100525
  Serious: Yes (Hospitalization, Other)
  Sender: FDA-Public Use
  Company Number: US-JNJFOC-20091000304

PATIENT
  Sex: Male
  Weight: 92.08 kg

DRUGS (1)
  1. DURAGESIC-100 [Suspect]
     Indication: ARTHRALGIA
     Route: 062

REACTIONS (4)
  - CARDIAC DISORDER [None]
  - PNEUMONIA [None]
  - PULMONARY BULLA [None]
  - WRONG TECHNIQUE IN DRUG USAGE PROCESS [None]
